FAERS Safety Report 4846029-0 (Version None)
Quarter: 2005Q4

REPORT INFORMATION
  Report Type: 
  Country: None (occurrence: None)
  Receive Date: 20051130
  Receipt Date: 20051128
  Transmission Date: 20060501
  Serious: Yes (Hospitalization)
  Sender: FDA-Public Use
  Company Number: THQ2005A00989

PATIENT
  Age: 42 Year
  Sex: Female

DRUGS (11)
  1. LANSOPRAZOLE [Suspect]
     Indication: HELICOBACTER GASTRITIS
     Dosage: SEE IMAGE
     Route: 048
     Dates: end: 20051104
  2. LANSOPRAZOLE [Suspect]
     Indication: OESOPHAGEAL ULCER
     Dosage: SEE IMAGE
     Route: 048
     Dates: end: 20051104
  3. LANSOPRAZOLE [Suspect]
     Indication: HELICOBACTER GASTRITIS
     Dosage: SEE IMAGE
     Route: 048
     Dates: start: 20051025
  4. LANSOPRAZOLE [Suspect]
     Indication: OESOPHAGEAL ULCER
     Dosage: SEE IMAGE
     Route: 048
     Dates: start: 20051025
  5. DIAZEPAM [Concomitant]
  6. VENLAFAXINE HCL [Concomitant]
  7. ESTRADIOL [Concomitant]
  8. THIAMINE [Concomitant]
  9. CLARITHROMYCIN [Concomitant]
  10. AMOXICILLIN [Concomitant]
  11. MULTIVITAMIN [Concomitant]

REACTIONS (3)
  - ABNORMAL BEHAVIOUR [None]
  - CONFUSIONAL STATE [None]
  - THINKING ABNORMAL [None]
